FAERS Safety Report 7151071-3 (Version None)
Quarter: 2010Q4

REPORT INFORMATION
  Report Type: 
  Country: None (occurrence: None)
  Receive Date: 20101126
  Receipt Date: 20101110
  Transmission Date: 20110411
  Serious: Yes (Other)
  Sender: FDA-Public Use
  Company Number: 2010BI040466

PATIENT
  Sex: Male

DRUGS (1)
  1. ZEVALIN [Suspect]
     Indication: MANTLE CELL LYMPHOMA
     Dosage: 14.8 MBQ/KG; 1X; IV
     Route: 042
     Dates: start: 20100825, end: 20100825

REACTIONS (1)
  - BONE MARROW FAILURE [None]
